FAERS Safety Report 21230179 (Version 1)
Quarter: 2022Q3

REPORT INFORMATION
  Report Type: Spontaneous
  Country: CN (occurrence: CN)
  Receive Date: 20220818
  Receipt Date: 20220818
  Transmission Date: 20221027
  Serious: Yes (Hospitalization, Other)
  Sender: FDA-Public Use
  Company Number: CN-009507513-2208CHN005720

PATIENT
  Sex: Male
  Weight: 60 kg

DRUGS (3)
  1. CILASTATIN SODIUM\IMIPENEM [Suspect]
     Active Substance: CILASTATIN SODIUM\IMIPENEM
     Indication: Infection
     Dosage: 0.5 G, Q6H
     Route: 041
     Dates: start: 20220729, end: 20220804
  2. ETIMICIN SULFATE [Concomitant]
     Active Substance: ETIMICIN SULFATE
     Indication: Infection
     Dosage: 0.2 G, QD
     Route: 041
     Dates: start: 20220729, end: 20220729
  3. ETIMICIN SULFATE [Concomitant]
     Active Substance: ETIMICIN SULFATE
     Dosage: 0.1 G (ALSO REPORTED AS 100 MG), QD
     Route: 041
     Dates: start: 20220730, end: 20220804

REACTIONS (1)
  - Epilepsy [Recovering/Resolving]

NARRATIVE: CASE EVENT DATE: 20220804
